FAERS Safety Report 5566170-7 (Version None)
Quarter: 2007Q4

REPORT INFORMATION
  Report Type: 
  Country: None (occurrence: None)
  Receive Date: 20071217
  Receipt Date: 20071217
  Transmission Date: 20080405
  Serious: No
  Sender: FDA-Public Use
  Company Number: None

PATIENT
  Age: 56 Year
  Sex: Male
  Weight: 93.441 kg

DRUGS (1)
  1. NORVASC [Suspect]
     Dosage: DAILY HTN
     Dates: start: 20070316

REACTIONS (5)
  - DRUG INTOLERANCE [None]
  - FEELING ABNORMAL [None]
  - FLUSHING [None]
  - SOMNOLENCE [None]
  - UNEVALUABLE EVENT [None]
